FAERS Safety Report 7852140-2 (Version None)
Quarter: 2011Q4

REPORT INFORMATION
  Report Type: 
  Country: None (occurrence: None)
  Receive Date: 20111026
  Receipt Date: 20111021
  Transmission Date: 20120403
  Serious: Yes (Other)
  Sender: FDA-Public Use
  Company Number: US-PFIZER INC-2011013863

PATIENT
  Sex: Female

DRUGS (4)
  1. PREMARIN [Suspect]
     Dosage: 0.9 MG, UNK
  2. PREMARIN [Suspect]
     Dosage: 0.45 MG, UNK
  3. PREMARIN [Suspect]
     Dosage: 0.625 MG, UNK
     Route: 048
  4. PREMARIN [Suspect]
     Dosage: 0.4 MG, UNK

REACTIONS (4)
  - DRUG INEFFECTIVE [None]
  - MENOPAUSAL SYMPTOMS [None]
  - HYPERTENSION [None]
  - FEELING ABNORMAL [None]
